FAERS Safety Report 10220665 (Version 2)
Quarter: 2014Q2

REPORT INFORMATION
  Report Type: Spontaneous
  Country: US (occurrence: US)
  Receive Date: 20140606
  Receipt Date: 20140611
  Transmission Date: 20141212
  Serious: Yes (Death, Life-Threatening, Hospitalization)
  Sender: FDA-Public Use
  Company Number: US-LUNDBECK-DKLU1100592

PATIENT
  Age: 0 Year
  Sex: Male
  Weight: 11 kg

DRUGS (5)
  1. SABRIL (FOR ORAL SOLUTION) [Suspect]
     Indication: INFANTILE SPASMS
     Dates: start: 20140408
  2. SABRIL (FOR ORAL SOLUTION) [Suspect]
     Indication: CONVULSION
     Route: 048
  3. SABRIL (FOR ORAL SOLUTION) [Suspect]
     Route: 048
     Dates: start: 201311
  4. CLONAZEPAM [Concomitant]
     Indication: PRODUCT USED FOR UNKNOWN INDICATION
  5. DEPAKOTE [Concomitant]
     Indication: PRODUCT USED FOR UNKNOWN INDICATION

REACTIONS (10)
  - Death [Fatal]
  - Escherichia infection [Unknown]
  - Tracheitis [Unknown]
  - Hypoxia [Unknown]
  - Pleural effusion [Unknown]
  - Urinary tract infection [Unknown]
  - Convulsion [Unknown]
  - Eye movement disorder [Unknown]
  - Dyskinesia [Unknown]
  - Drug dose omission [Recovered/Resolved]
